FAERS Safety Report 5018245-9 (Version None)
Quarter: 2006Q2

REPORT INFORMATION
  Report Type: 
  Country: None (occurrence: None)
  Receive Date: 20060530
  Receipt Date: 20060516
  Transmission Date: 20061013
  Serious: Yes (Hospitalization)
  Sender: FDA-Public Use
  Company Number: 2006065376

PATIENT
  Age: 65 Year
  Sex: Male
  Weight: 88.4514 kg

DRUGS (1)
  1. CELEBREX [Suspect]
     Indication: ARTHRITIS
     Dosage: 200 MG (200 MG, 1 IN 1 D);
     Dates: start: 20040901, end: 20050101

REACTIONS (3)
  - AMNESIA [None]
  - CARDIAC DISORDER [None]
  - TRIPLE VESSEL BYPASS GRAFT [None]
